FAERS Safety Report 7242915-5 (Version None)
Quarter: 2011Q1

REPORT INFORMATION
  Report Type: 
  Country: None (occurrence: None)
  Receive Date: 20110125
  Receipt Date: 20110125
  Transmission Date: 20110831
  Serious: No
  Sender: FDA-Public Use
  Company Number: US-ELI_LILLY_AND_COMPANY-US201009000278

PATIENT
  Sex: Male

DRUGS (6)
  1. TOPAMAX [Concomitant]
  2. PROZAC [Suspect]
     Indication: DEPRESSION
     Dosage: 10 MG, DAILY (1/D)
  3. TRAZODONE HCL [Concomitant]
     Dosage: 50 MG, 2/D
  4. KEPPRA [Concomitant]
  5. PROTONIX [Concomitant]
  6. PLAVIX [Concomitant]

REACTIONS (3)
  - CONFUSIONAL STATE [None]
  - GAIT DISTURBANCE [None]
  - ROAD TRAFFIC ACCIDENT [None]
